FAERS Safety Report 6427878-4 (Version None)
Quarter: 2009Q4

REPORT INFORMATION
  Report Type: 
  Country: None (occurrence: None)
  Receive Date: 20091102
  Receipt Date: 20091026
  Transmission Date: 20100525
  Serious: Yes (Life-Threatening, Hospitalization)
  Sender: FDA-Public Use
  Company Number: US025177

PATIENT
  Age: 54 Year
  Sex: Male
  Weight: 86 kg

DRUGS (4)
  1. ACTIQ [Suspect]
     Dosage: 14400 MCG (800 MCG, 18 IN 1 ONCE), BU
     Route: 002
     Dates: start: 20081208, end: 20081208
  2. AMITRIPTYLINE HYDROCHLORIDE [Concomitant]
  3. ACETAMINOPHEN [Concomitant]
  4. KETOPROFEN [Concomitant]

REACTIONS (7)
  - COMA [None]
  - CYTOLYTIC HEPATITIS [None]
  - DECUBITUS ULCER [None]
  - DRUG TOXICITY [None]
  - INTENTIONAL OVERDOSE [None]
  - RHABDOMYOLYSIS [None]
  - SUICIDE ATTEMPT [None]
